FAERS Safety Report 9089468 (Version 2)
Quarter: 2013Q1

REPORT INFORMATION
  Report Type: Spontaneous
  Country: US (occurrence: US)
  Receive Date: 20130201
  Receipt Date: 20130328
  Transmission Date: 20140127
  Serious: Yes (Other)
  Sender: FDA-Public Use
  Company Number: US-ASTRAZENECA-2013SE05357

PATIENT
  Age: 51 Year
  Sex: Male

DRUGS (1)
  1. SYMBICORT [Suspect]
     Dosage: TWO PUFFS, BID
     Route: 055

REACTIONS (3)
  - Dyspnoea [Unknown]
  - Malaise [Unknown]
  - Adverse event [Unknown]
